FAERS Safety Report 11618756 (Version 1)
Quarter: 2015Q4

REPORT INFORMATION
  Report Type: Spontaneous
  Country: US (occurrence: US)
  Receive Date: 20151012
  Receipt Date: 20151012
  Transmission Date: 20160304
  Serious: No
  Sender: FDA-Public Use
  Company Number: US-GLENMARK PHARMACEUTICALS INC, USA.-2015GMK014913

PATIENT
  Age: 39 Year
  Sex: Male

DRUGS (5)
  1. BUSPIRONE [Suspect]
     Active Substance: BUSPIRONE HYDROCHLORIDE
     Indication: HIV PERIPHERAL NEUROPATHY
     Dosage: 20 MG, BID
  2. GABAPENTIN. [Suspect]
     Active Substance: GABAPENTIN
     Indication: HIV PERIPHERAL NEUROPATHY
     Dosage: 400 MG, BID
  3. CLONAZEPAM. [Suspect]
     Active Substance: CLONAZEPAM
     Indication: HIV PERIPHERAL NEUROPATHY
     Dosage: 0.5 MG, BID
  4. PREGABALIN. [Suspect]
     Active Substance: PREGABALIN
     Indication: HIV PERIPHERAL NEUROPATHY
     Dosage: 350 MG, QD
  5. CITALOPRAM HYDROBROMIDE. [Concomitant]
     Active Substance: CITALOPRAM HYDROBROMIDE
     Indication: DEPRESSION
     Dosage: 20 MG, QD

REACTIONS (2)
  - Drug ineffective for unapproved indication [Recovered/Resolved]
  - Adverse drug reaction [None]
